FAERS Safety Report 6391006-4 (Version None)
Quarter: 2009Q4

REPORT INFORMATION
  Report Type: 
  Country: None (occurrence: None)
  Receive Date: 20091007
  Receipt Date: 20090929
  Transmission Date: 20100525
  Serious: Yes (Hospitalization)
  Sender: FDA-Public Use
  Company Number: US-BIOGENIDEC-2009BI011129

PATIENT
  Age: 55 Year
  Sex: Female

DRUGS (1)
  1. TYSABRI [Suspect]
     Indication: MULTIPLE SCLEROSIS
     Route: 042
     Dates: start: 20080311

REACTIONS (11)
  - BLOOD POTASSIUM DECREASED [None]
  - BONE CYST [None]
  - CYST [None]
  - DEPRESSION [None]
  - FATIGUE [None]
  - FEELING ABNORMAL [None]
  - HAEMORRHAGIC CYST [None]
  - NERVE COMPRESSION [None]
  - RASH [None]
  - SPINAL DISORDER [None]
  - STOMATITIS [None]
